FAERS Safety Report 25937248 (Version 1)
Quarter: 2025Q4

REPORT INFORMATION
  Report Type: Spontaneous
  Country: GB (occurrence: GB)
  Receive Date: 20251017
  Receipt Date: 20251017
  Transmission Date: 20260117
  Serious: Yes (Other)
  Sender: MERCK SHARP & DOHME LLC
  Company Number: GB-MHRA-37275531

PATIENT
  Age: 24 Month
  Sex: Female

DRUGS (4)
  1. MEASLES-MUMPS-RUBELLA VIRUS VACCINE, LIVE [Suspect]
     Active Substance: MEASLES-MUMPS-RUBELLA VIRUS VACCINE, LIVE
     Indication: Prophylaxis
  2. MENINGOCOCCAL VACCINE NOS [Suspect]
     Active Substance: MENINGOCOCCAL VACCINE
  3. STERILE DILUENT (WATER) [Suspect]
     Active Substance: WATER
     Indication: Prophylaxis
  4. PNEUMOCOCCAL VACCINE NOS [Suspect]
     Active Substance: PNEUMOCOCCAL VACCINE
     Indication: Prophylaxis

REACTIONS (2)
  - Cerebellar ataxia [Not Recovered/Not Resolved]
  - Gait inability [Recovered/Resolved]
